FAERS Safety Report 6484651-9 (Version None)
Quarter: 2009Q4

REPORT INFORMATION
  Report Type: 
  Country: None (occurrence: None)
  Receive Date: 20091209
  Receipt Date: 20090601
  Transmission Date: 20100525
  Serious: No
  Sender: FDA-Public Use
  Company Number: US-AMGEN-KDL349691

PATIENT
  Sex: Female

DRUGS (2)
  1. ENBREL [Suspect]
     Indication: SERONEGATIVE ARTHRITIS
     Route: 058
     Dates: start: 20090302
  2. METHOTREXATE [Concomitant]

REACTIONS (7)
  - ANKLE FRACTURE [None]
  - ARTHRITIS [None]
  - DIARRHOEA [None]
  - FALL [None]
  - JOINT LOCK [None]
  - LOWER LIMB FRACTURE [None]
  - MENISCUS LESION [None]
